FAERS Safety Report 25135826 (Version 1)
Quarter: 2025Q1

REPORT INFORMATION
  Report Type: Spontaneous
  Country: FR (occurrence: FR)
  Receive Date: 20250328
  Receipt Date: 20250328
  Transmission Date: 20250409
  Serious: Yes (Life-Threatening)
  Sender: JOHNSON AND JOHNSON
  Company Number: FR-JNJFOC-20250381221

PATIENT
  Sex: Male

DRUGS (1)
  1. HALOPERIDOL [Suspect]
     Active Substance: HALOPERIDOL
     Indication: Schizophrenia
     Route: 064
     Dates: start: 202403, end: 20241204

REACTIONS (6)
  - Apgar score low [Recovered/Resolved]
  - Cyanosis [Recovered/Resolved]
  - Hypoventilation [Recovered/Resolved]
  - Hypotonia [Recovered/Resolved]
  - Poor feeding infant [Recovered/Resolved]
  - Maternal exposure timing unspecified [Recovered/Resolved]

NARRATIVE: CASE EVENT DATE: 20241203
